FAERS Safety Report 9151939 (Version 1)
Quarter: 2013Q1

REPORT INFORMATION
  Report Type: Spontaneous
  Country: US (occurrence: US)
  Receive Date: 20130308
  Receipt Date: 20130308
  Transmission Date: 20140127
  Serious: Yes (Death)
  Sender: FDA-Public Use
  Company Number: US-ELI_LILLY_AND_COMPANY-US201303000419

PATIENT
  Age: 82 Year
  Sex: Male

DRUGS (4)
  1. FORTEO [Suspect]
     Indication: OSTEOPOROSIS
  2. MVI [Concomitant]
     Dosage: UNK
  3. PHENOBARBITAL [Concomitant]
     Dosage: UNK
  4. SENOKOT [Concomitant]

REACTIONS (1)
  - Leukaemia [Fatal]
